FAERS Safety Report 15069500 (Version 1)
Quarter: 2018Q2

REPORT INFORMATION
  Report Type: Spontaneous
  Country: AU (occurrence: AU)
  Receive Date: 20180626
  Receipt Date: 20180626
  Transmission Date: 20180711
  Serious: Yes (Other)
  Sender: FDA-Public Use
  Company Number: AU-MYLANLABS-2018M1044204

PATIENT
  Age: 7 Decade
  Sex: Male

DRUGS (3)
  1. KEVTAM [Suspect]
     Active Substance: LEVETIRACETAM
     Indication: SEIZURE
     Dosage: 250 MG, TID
     Dates: start: 201708
  2. KEVTAM [Suspect]
     Active Substance: LEVETIRACETAM
     Dosage: 500 MG, BID
     Dates: start: 201708
  3. KEVTAM [Suspect]
     Active Substance: LEVETIRACETAM
     Dosage: 1000 MG, ONCE IN EVENING
     Dates: start: 201708

REACTIONS (3)
  - Seizure [Unknown]
  - Product physical issue [Unknown]
  - Drug ineffective [Unknown]

NARRATIVE: CASE EVENT DATE: 20180612
